FAERS Safety Report 21261703 (Version 1)
Quarter: 2022Q3

REPORT INFORMATION
  Report Type: Spontaneous
  Country: US (occurrence: US)
  Receive Date: 20220827
  Receipt Date: 20220827
  Transmission Date: 20221027
  Serious: No
  Sender: FDA-Public Use
  Company Number: US-BRISTOL-MYERS SQUIBB COMPANY-2022-096763

PATIENT
  Age: 81 Year
  Sex: Female

DRUGS (1)
  1. REVLIMID [Suspect]
     Active Substance: LENALIDOMIDE
     Indication: Plasma cell myeloma
     Dosage: 7.5 MILLIGRAM, DAILY
     Route: 048
     Dates: start: 20220604

REACTIONS (3)
  - Nausea [Recovering/Resolving]
  - Diarrhoea [Unknown]
  - Intentional product use issue [Unknown]
